FAERS Safety Report 11654322 (Version 1)
Quarter: 2015Q4

REPORT INFORMATION
  Report Type: Spontaneous
  Country: US (occurrence: None)
  Receive Date: 20151022
  Receipt Date: 20151022
  Transmission Date: 20160304
  Serious: Yes (Hospitalization)
  Sender: FDA-Public Use
  Company Number: None

PATIENT
  Age: 74 Year
  Sex: Female
  Weight: 154.5 kg

DRUGS (23)
  1. MICARDIS [Concomitant]
     Active Substance: TELMISARTAN
  2. LOTEMAX 0.5 SUSP (L0TEPREDNOL ETABONATE) [Concomitant]
  3. ASPIRIN EC LOW DOSE (ASPIRIN) [Concomitant]
  4. RESTASIS 0.05% EMUL (CYCLOSPORINE) [Concomitant]
  5. FUROSEMIDE. [Concomitant]
     Active Substance: FUROSEMIDE
  6. AZELASTINE HCL SOLN [Concomitant]
  7. MIRALAX ORAL PACK (POLYETHYLENE GLYCOL) [Concomitant]
  8. CLOPIDOGREL BISULFATE. [Concomitant]
     Active Substance: CLOPIDOGREL BISULFATE
  9. WELLBUTRIN SR (BUPROPION HCL) [Concomitant]
  10. OXYBUTYNIN CHLORIDE. [Concomitant]
     Active Substance: OXYBUTYNIN CHLORIDE
  11. NEXIUM [Concomitant]
     Active Substance: ESOMEPRAZOLE MAGNESIUM
  12. POTASSIUM CHLORIDE ER CR-TABS [Concomitant]
  13. DESLORATADINE. [Concomitant]
     Active Substance: DESLORATADINE
  14. IPRATROPIUM BROMIDE SOLN [Concomitant]
  15. PROAIR HFA 108 (90 BASE) MCG/ACT AER (ALBUTEROL SULFATE) [Concomitant]
  16. ADCIRCA (TADALAFIL (PAH)) [Concomitant]
  17. PREMARIN (ESTROGENS CONJUGATED TABS) [Concomitant]
  18. DOMPERIDONE [Concomitant]
     Active Substance: DOMPERIDONE
  19. ATORVASTATIN CALCIUM. [Concomitant]
     Active Substance: ATORVASTATIN CALCIUM
  20. DOMPERIDONE [Suspect]
     Active Substance: DOMPERIDONE
     Indication: IMPAIRED GASTRIC EMPTYING
     Route: 048
     Dates: start: 201208
  21. OPSUMIT [Concomitant]
     Active Substance: MACITENTAN
  22. DOCUSATE SODIUM. [Concomitant]
     Active Substance: DOCUSATE SODIUM
  23. SPIRONOLACTONE. [Concomitant]
     Active Substance: SPIRONOLACTONE

REACTIONS (1)
  - Dyspnoea [None]

NARRATIVE: CASE EVENT DATE: 20150908
